FAERS Safety Report 9456674 (Version 3)
Quarter: 2013Q3

REPORT INFORMATION
  Report Type: Spontaneous
  Country: FI (occurrence: FI)
  Receive Date: 20130813
  Receipt Date: 20130904
  Transmission Date: 20140515
  Serious: Yes (Other)
  Sender: FDA-Public Use
  Company Number: FI-PFIZER INC-2013232473

PATIENT
  Sex: Female

DRUGS (2)
  1. LYRICA [Suspect]
     Indication: GLOSSODYNIA
     Dosage: 300 MG, 2X/DAY
     Dates: start: 2006
  2. VISANNE [Interacting]
     Indication: ENDOMETRIOSIS
     Dosage: UNK
     Dates: start: 201307, end: 201308

REACTIONS (4)
  - Off label use [Unknown]
  - Endometriosis [Unknown]
  - Drug interaction [Unknown]
  - Pain [Recovering/Resolving]
